FAERS Safety Report 6355344-3 (Version None)
Quarter: 2009Q3

REPORT INFORMATION
  Report Type: 
  Country: None (occurrence: None)
  Receive Date: 20090914
  Receipt Date: 20090908
  Transmission Date: 20100115
  Serious: Yes (Death, Hospitalization, Other)
  Sender: FDA-Public Use
  Company Number: US-CELGENEUS-163-20785-09090615

PATIENT
  Sex: Female

DRUGS (4)
  1. THALOMID [Suspect]
     Route: 048
     Dates: start: 20080301
  2. THALOMID [Suspect]
     Indication: PYODERMA GANGRENOSUM
     Route: 048
     Dates: start: 20020401
  3. THALOMID [Suspect]
     Route: 048
     Dates: start: 20010801
  4. THALOMID [Suspect]
     Dates: start: 20090101, end: 20090901

REACTIONS (2)
  - COLITIS ISCHAEMIC [None]
  - MULTI-ORGAN FAILURE [None]
